FAERS Safety Report 19938059 (Version 1)
Quarter: 2021Q4

REPORT INFORMATION
  Report Type: Spontaneous
  Country: US (occurrence: US)
  Receive Date: 20211011
  Receipt Date: 20211011
  Transmission Date: 20220303
  Serious: No
  Sender: FDA-Public Use
  Company Number: US-ROCHE-2774494

PATIENT
  Age: 54 Year
  Sex: Male

DRUGS (1)
  1. ZELBORAF [Suspect]
     Active Substance: VEMURAFENIB
     Indication: Hairy cell leukaemia recurrent
     Route: 048
     Dates: start: 202011

REACTIONS (4)
  - Fatigue [Unknown]
  - Oedema peripheral [Unknown]
  - Heart rate increased [Unknown]
  - Skin papilloma [Unknown]

NARRATIVE: CASE EVENT DATE: 20210218
